FAERS Safety Report 14363362 (Version 1)
Quarter: 2018Q1

REPORT INFORMATION
  Report Type: Spontaneous
  Country: US (occurrence: US)
  Receive Date: 20180105
  Receipt Date: 20180105
  Transmission Date: 20180509
  Serious: Yes (Hospitalization)
  Sender: FDA-Public Use
  Company Number: None

PATIENT
  Age: 58 Year
  Sex: Female
  Weight: 93.2 kg

DRUGS (1)
  1. HUMIRA [Suspect]
     Active Substance: ADALIMUMAB
     Indication: CROHN^S DISEASE
     Dosage: 40MG/0.8ML INJECTION40MG BI WEEKLY SUBCUTANEOUSLY
     Route: 058
     Dates: start: 20141119

REACTIONS (1)
  - Gastrointestinal infection [None]

NARRATIVE: CASE EVENT DATE: 20171020
